FAERS Safety Report 10150009 (Version 2)
Quarter: 2014Q2

REPORT INFORMATION
  Report Type: Spontaneous
  Country: US (occurrence: US)
  Receive Date: 20140502
  Receipt Date: 20140502
  Transmission Date: 20141212
  Serious: Yes (Hospitalization, Other)
  Sender: FDA-Public Use
  Company Number: US-US-EMD SERONO, INC.-230256K08USA

PATIENT
  Sex: Female

DRUGS (9)
  1. REBIF [Suspect]
     Indication: MULTIPLE SCLEROSIS
     Route: 058
     Dates: start: 20070112
  2. REBIF [Suspect]
     Route: 058
  3. TORADOL [Concomitant]
     Indication: PREMEDICATION
  4. EXTRA STRENGTH TYLENOL [Concomitant]
     Indication: PREMEDICATION
  5. TRAMADOL [Concomitant]
     Indication: FIBROMYALGIA
  6. TRAMADOL [Concomitant]
     Indication: ARTHRALGIA
  7. DUONEB [Concomitant]
     Indication: ASTHMA
  8. PRILOSEC [Concomitant]
     Indication: GASTROOESOPHAGEAL REFLUX DISEASE
  9. NEXIUM [Concomitant]
     Indication: GASTROOESOPHAGEAL REFLUX DISEASE

REACTIONS (4)
  - Hiatus hernia [Recovering/Resolving]
  - Aspiration [Unknown]
  - Cartilage injury [Recovering/Resolving]
  - Cyst [Not Recovered/Not Resolved]
